FAERS Safety Report 13137384 (Version 1)
Quarter: 2017Q1

REPORT INFORMATION
  Report Type: Report from Study
  Country: CA (occurrence: CA)
  Receive Date: 20170123
  Receipt Date: 20170123
  Transmission Date: 20170428
  Serious: Yes (Other)
  Sender: FDA-Public Use
  Company Number: CA-AMGEN-CANSL2017008392

PATIENT
  Age: 62 Year
  Sex: Female

DRUGS (2)
  1. ENBREL [Suspect]
     Active Substance: ETANERCEPT
     Indication: RHEUMATOID ARTHRITIS
     Dosage: 50 MG, ONCE A WEEK
     Route: 065
     Dates: start: 20130122
  2. LEFLUNOMIDE. [Concomitant]
     Active Substance: LEFLUNOMIDE
     Dosage: 20 MG, QD
     Route: 048

REACTIONS (8)
  - Joint effusion [Unknown]
  - Musculoskeletal discomfort [Unknown]
  - C-reactive protein abnormal [Unknown]
  - Inflammation [Unknown]
  - Osteoarthritis [Unknown]
  - Arthritis [Unknown]
  - Arthralgia [Unknown]
  - Renal impairment [Unknown]

NARRATIVE: CASE EVENT DATE: 20161213
